FAERS Safety Report 7322564-0 (Version None)
Quarter: 2011Q1

REPORT INFORMATION
  Report Type: 
  Country: None (occurrence: None)
  Receive Date: 20110215
  Receipt Date: 20110202
  Transmission Date: 20110831
  Serious: Yes (Other)
  Sender: FDA-Public Use
  Company Number: 2011SP005908

PATIENT
  Age: 60 Year
  Sex: Female

DRUGS (1)
  1. TEMODAL [Suspect]
     Indication: PRODUCT USED FOR UNKNOWN INDICATION

REACTIONS (2)
  - BONE MARROW FAILURE [None]
  - PNEUMONIA [None]
